FAERS Safety Report 11054348 (Version 1)
Quarter: 2015Q2

REPORT INFORMATION
  Report Type: Spontaneous
  Country: US (occurrence: None)
  Receive Date: 20150420
  Receipt Date: 20150420
  Transmission Date: 20150821
  Serious: Yes (Other)
  Sender: FDA-Public Use
  Company Number: 2015AKN00214

PATIENT
  Age: 18 Year
  Sex: Male

DRUGS (2)
  1. MYORISAN [Suspect]
     Active Substance: ISOTRETINOIN
  2. MYORISAN [Suspect]
     Active Substance: ISOTRETINOIN
     Dates: end: 2015

REACTIONS (4)
  - Depression [None]
  - Social avoidant behaviour [None]
  - Mood altered [None]
  - Crying [None]
